FAERS Safety Report 18498705 (Version 1)
Quarter: 2020Q4

REPORT INFORMATION
  Report Type: Report from Study
  Country: AR (occurrence: AR)
  Receive Date: 20201112
  Receipt Date: 20201112
  Transmission Date: 20210114
  Serious: Yes (Hospitalization, Other)
  Sender: FDA-Public Use
  Company Number: AR-TAKEDA-AR202024001

PATIENT
  Age: 23 Year
  Sex: Male

DRUGS (2)
  1. ELAPRASE [Suspect]
     Active Substance: IDURSULFASE
     Indication: MUCOPOLYSACCHARIDOSIS II
     Dosage: 2 DOSAGE FORM, 1X/WEEK
     Route: 042
  2. ELAPRASE [Suspect]
     Active Substance: IDURSULFASE
     Dosage: 0.5MILLIGRAM/KILOGRAM, 1X/WEEK
     Route: 042

REACTIONS (5)
  - Hospitalisation [Unknown]
  - Drug ineffective [Unknown]
  - Dehydration [Unknown]
  - Eating disorder [Unknown]
  - Dysphagia [Unknown]
